FAERS Safety Report 22069975 (Version 1)
Quarter: 2023Q1

REPORT INFORMATION
  Report Type: Spontaneous
  Country: US (occurrence: US)
  Receive Date: 20230307
  Receipt Date: 20230307
  Transmission Date: 20230417
  Serious: No
  Sender: FDA-Public Use
  Company Number: US-AMNEAL PHARMACEUTICALS-2022-AMRX-00994

PATIENT
  Sex: Female

DRUGS (2)
  1. RYTARY [Suspect]
     Active Substance: CARBIDOPA\LEVODOPA
     Indication: Product used for unknown indication
     Dosage: 4 CAPSULES (23.75-95MG), QID
     Route: 048
  2. RYTARY [Suspect]
     Active Substance: CARBIDOPA\LEVODOPA
     Dosage: 4 CAPSULES (48.75-195 MG), QID
     Route: 048

REACTIONS (3)
  - Freezing phenomenon [Unknown]
  - Gait disturbance [Unknown]
  - Fall [Unknown]
